FAERS Safety Report 8004802-4 (Version None)
Quarter: 2011Q4

REPORT INFORMATION
  Report Type: 
  Country: None (occurrence: None)
  Receive Date: 20111223
  Receipt Date: 20111215
  Transmission Date: 20120403
  Serious: Yes (Other)
  Sender: FDA-Public Use
  Company Number: JP-ASTELLAS-2011JP001992

PATIENT
  Age: 34 Year
  Sex: Female
  Weight: 45 kg

DRUGS (22)
  1. METHYLPREDNISOLONE [Concomitant]
     Indication: LUPUS NEPHRITIS
     Dosage: 24 MG, QOD
     Route: 048
     Dates: end: 20080722
  2. LEVOTHYROXINE SODIUM [Concomitant]
     Dosage: 50 UG, UNKNOWN/D
     Route: 048
  3. ULGUT [Concomitant]
     Dosage: 400 MG, UNKNOWN/D
     Route: 048
  4. MEILAX [Concomitant]
     Dosage: 1 MG, UNKNOWN/D
     Route: 048
  5. THIATON [Concomitant]
     Indication: CALCULUS URINARY
     Route: 065
  6. ASPIRIN [Concomitant]
     Dosage: 100 MG, UNKNOWN/D
     Route: 048
  7. CHLOMY [Concomitant]
     Indication: VAGINITIS BACTERIAL
     Dosage: 100 MG, UNKNOWN/D
     Route: 067
  8. TACROLIMUS [Suspect]
     Indication: LUPUS NEPHRITIS
     Dosage: 3 MG, UNKNOWN/D
     Route: 048
     Dates: start: 20080116, end: 20081125
  9. TACROLIMUS [Suspect]
     Dosage: 2 MG, UNKNOWN/D
     Route: 048
     Dates: start: 20081126
  10. COSPANON [Concomitant]
     Indication: CALCULUS URINARY
     Route: 065
  11. METHYLPREDNISOLONE [Concomitant]
     Dosage: 20 MG, QOD
     Route: 048
     Dates: start: 20080723
  12. FLOMOX [Concomitant]
     Indication: NASOPHARYNGITIS
     Dosage: 200 MG, UNKNOWN/D
     Route: 065
  13. THIATON [Concomitant]
     Indication: HYDRONEPHROSIS
  14. MEIACT [Concomitant]
     Indication: CALCULUS URINARY
     Route: 065
  15. MEIACT [Concomitant]
     Indication: HYDRONEPHROSIS
  16. ZOLPIDEM [Concomitant]
     Dosage: 5 MG, UNKNOWN/D
     Route: 048
  17. UROCALUN [Concomitant]
     Indication: HYDRONEPHROSIS
  18. ALFAROL [Concomitant]
     Dosage: 0.25 UG, UNKNOWN/D
     Route: 048
  19. FAMOTIDINE [Concomitant]
     Dosage: 20 MG, UNKNOWN/D
     Route: 048
  20. ALENDRONATE SODIUM [Concomitant]
     Dosage: 5 MG, UNKNOWN/D
     Route: 048
  21. COSPANON [Concomitant]
     Indication: HYDRONEPHROSIS
  22. UROCALUN [Concomitant]
     Indication: CALCULUS URINARY
     Route: 065

REACTIONS (8)
  - PHARYNGITIS [None]
  - HYDRONEPHROSIS [None]
  - URACHAL ABSCESS [None]
  - GASTROENTERITIS [None]
  - UPPER RESPIRATORY TRACT INFLAMMATION [None]
  - NASOPHARYNGITIS [None]
  - CALCULUS URINARY [None]
  - VAGINITIS BACTERIAL [None]
